FAERS Safety Report 5290717-1 (Version None)
Quarter: 2007Q2

REPORT INFORMATION
  Report Type: 
  Country: None (occurrence: None)
  Receive Date: 20070409
  Receipt Date: 20070330
  Transmission Date: 20071010
  Serious: Yes (Other)
  Sender: FDA-Public Use
  Company Number: GB-JNJFOC-20070400491

PATIENT
  Sex: Male

DRUGS (3)
  1. RISPERDAL [Suspect]
     Indication: AGGRESSION
     Route: 048
  2. OXCARBAZEPINE [Suspect]
     Route: 048
  3. OXCARBAZEPINE [Suspect]
     Indication: AGGRESSION
     Route: 048

REACTIONS (1)
  - TIC [None]
